FAERS Safety Report 5908754-X (Version None)
Quarter: 2008Q4

REPORT INFORMATION
  Report Type: 
  Country: None (occurrence: None)
  Receive Date: 20081006
  Receipt Date: 20081002
  Transmission Date: 20090506
  Serious: Yes (Life-Threatening)
  Sender: FDA-Public Use
  Company Number: US-WYE-H06200708

PATIENT
  Age: 2 Month

DRUGS (1)
  1. ROBITUSSIN DM [Suspect]
     Dosage: 1/4 TEASPOON
     Route: 048
     Dates: start: 20080801

REACTIONS (2)
  - OFF LABEL USE [None]
  - UNEVALUABLE EVENT [None]
